FAERS Safety Report 5209278-8 (Version None)
Quarter: 2006Q4

REPORT INFORMATION
  Report Type: 
  Country: None (occurrence: None)
  Receive Date: 20061101
  Receipt Date: 20060727
  Transmission Date: 20070319
  Serious: No
  Sender: FDA-Public Use
  Company Number: 2006PV014791

PATIENT
  Age: 66 Year
  Sex: Male
  Weight: 65.7716 kg

DRUGS (8)
  1. SYMLIN [Suspect]
     Indication: DIABETES MELLITUS NON-INSULIN-DEPENDENT
     Dosage: SEE IMAGE
     Route: 058
     Dates: start: 20060101, end: 20060101
  2. SYMLIN [Suspect]
     Indication: DIABETES MELLITUS NON-INSULIN-DEPENDENT
     Dosage: SEE IMAGE
     Route: 058
     Dates: start: 20060329, end: 20060101
  3. SYMLIN [Suspect]
     Indication: DIABETES MELLITUS NON-INSULIN-DEPENDENT
     Dosage: SEE IMAGE
     Route: 058
     Dates: start: 20060401, end: 20060101
  4. SYMLIN [Suspect]
     Indication: DIABETES MELLITUS NON-INSULIN-DEPENDENT
     Dosage: SEE IMAGE
     Route: 058
     Dates: start: 20060601
  5. LANTUS [Concomitant]
  6. HUMALOG [Concomitant]
  7. LIPITOR [Concomitant]
  8. AVAPRO [Concomitant]

REACTIONS (9)
  - ANOREXIA [None]
  - DECREASED APPETITE [None]
  - DIZZINESS [None]
  - FATIGUE [None]
  - INJECTION SITE PAIN [None]
  - NAUSEA [None]
  - RHINORRHOEA [None]
  - SOMNOLENCE [None]
  - WEIGHT DECREASED [None]
